FAERS Safety Report 8522507-8 (Version None)
Quarter: 2012Q3

REPORT INFORMATION
  Report Type: 
  Country: None (occurrence: None)
  Receive Date: 20120719
  Receipt Date: 20120712
  Transmission Date: 20120928
  Serious: No
  Sender: FDA-Public Use
  Company Number: US-B.I. PHARMACEUTICALS,INC./RIDGEFIELD-2011-BP-27575BP

PATIENT
  Sex: Female
  Weight: 103.42 kg

DRUGS (6)
  1. MAVIK [Concomitant]
     Indication: HYPERTENSION
     Dates: start: 20070101
  2. METOPROLOL TARTRATE [Concomitant]
     Dosage: 50 MG
     Route: 048
  3. TRADJENTA [Suspect]
     Indication: TYPE 2 DIABETES MELLITUS
     Dates: start: 20111006, end: 20111010
  4. ALDACTONE [Concomitant]
     Indication: HYPERTENSION
     Dates: start: 20070101
  5. INDERAL [Concomitant]
     Indication: CROHN'S DISEASE
  6. PRILOSEC [Concomitant]
     Indication: GASTROOESOPHAGEAL REFLUX DISEASE
     Dates: start: 20040101

REACTIONS (1)
  - LIP SWELLING [None]
